FAERS Safety Report 13262160 (Version 1)
Quarter: 2017Q1

REPORT INFORMATION
  Report Type: Spontaneous
  Country: US (occurrence: US)
  Receive Date: 20170222
  Receipt Date: 20170222
  Transmission Date: 20170428
  Serious: Yes (Hospitalization)
  Sender: FDA-Public Use
  Company Number: US-BEH-2017078205

PATIENT
  Sex: Male
  Weight: 77.98 kg

DRUGS (12)
  1. BERINERT [Suspect]
     Active Substance: HUMAN C1-ESTERASE INHIBITOR
     Indication: HEREDITARY ANGIOEDEMA
     Dosage: 2000 IU, PRN
     Route: 042
     Dates: start: 20161019
  2. AMLODIPINE [Concomitant]
     Active Substance: AMLODIPINE BESYLATE
  3. PRAVASTATIN. [Concomitant]
     Active Substance: PRAVASTATIN
  4. CARVEDILOL. [Concomitant]
     Active Substance: CARVEDILOL
  5. EPIPEN [Concomitant]
     Active Substance: EPINEPHRINE
  6. KLONOPIN [Concomitant]
     Active Substance: CLONAZEPAM
  7. OMEGA 3                            /01333901/ [Concomitant]
     Active Substance: FISH OIL\TOCOPHEROL
  8. OXYCODONE [Concomitant]
     Active Substance: OXYCODONE
  9. BERINERT [Suspect]
     Active Substance: HUMAN C1-ESTERASE INHIBITOR
     Dosage: UNK
     Route: 042
  10. SODIUM CHLORIDE. [Concomitant]
     Active Substance: SODIUM CHLORIDE
  11. GABAPENTIN. [Concomitant]
     Active Substance: GABAPENTIN
  12. MULTIVITAMIN                       /00097801/ [Concomitant]
     Active Substance: VITAMINS

REACTIONS (1)
  - Drug ineffective [Unknown]
